FAERS Safety Report 9931641 (Version 2)
Quarter: 2014Q1

REPORT INFORMATION
  Report Type: Report from Study
  Country: GB (occurrence: GB)
  Receive Date: 20140228
  Receipt Date: 20140228
  Transmission Date: 20141002
  Serious: Yes (Death)
  Sender: FDA-Public Use
  Company Number: GB-ROCHE-1347895

PATIENT
  Age: 71 Year
  Sex: Male
  Weight: 144.8 kg

DRUGS (4)
  1. VISMODEGIB [Suspect]
     Indication: BASAL CELL CARCINOMA
     Dosage: THE LAST DOSE PRIOR TO THE EVENT WAS ON 06/FEB/2014. DOSE, ROUTE AND FREQUENCY AS PER PROTOCOL. PERM
     Route: 048
     Dates: start: 20130517, end: 20140206
  2. TENORETIC [Concomitant]
     Indication: HYPERTENSION
     Route: 065
     Dates: start: 200101
  3. FLUCLOXACILLIN [Concomitant]
     Indication: INFECTION
     Route: 065
     Dates: start: 20130530, end: 20130606
  4. QUININE SULFATE [Concomitant]
     Indication: MUSCLE SPASMS
     Route: 065
     Dates: start: 20131004

REACTIONS (1)
  - Pulmonary embolism [Fatal]
